FAERS Safety Report 12261055 (Version 1)
Quarter: 2016Q2

REPORT INFORMATION
  Report Type: Spontaneous
  Country: US (occurrence: US)
  Receive Date: 20160412
  Receipt Date: 20160412
  Transmission Date: 20160815
  Serious: No
  Sender: FDA-Public Use
  Company Number: US-INCYTE CORPORATION-2016IN000813

PATIENT
  Sex: Female

DRUGS (1)
  1. JAKAFI [Suspect]
     Active Substance: RUXOLITINIB
     Dosage: 10 MG, ONE TABLET QD ON DAY 1, TWO TABLETS QD ON DAY 2, THEN REPEAT TWO DAY CYCLE
     Route: 048
     Dates: start: 20160115

REACTIONS (1)
  - Laboratory test abnormal [Unknown]
